FAERS Safety Report 24423318 (Version 1)
Quarter: 2024Q4

REPORT INFORMATION
  Report Type: Spontaneous
  Country: PL (occurrence: PL)
  Receive Date: 20241010
  Receipt Date: 20241010
  Transmission Date: 20250115
  Serious: Yes (Life-Threatening)
  Sender: TEVA
  Company Number: None

PATIENT
  Age: 28 Year
  Sex: Male
  Weight: 70 kg

DRUGS (4)
  1. ZOLPIDEM [Suspect]
     Active Substance: ZOLPIDEM TARTRATE
     Indication: Toxicity to various agents
     Route: 048
     Dates: start: 20200726, end: 20200726
  2. MIANSERIN [Suspect]
     Active Substance: MIANSERIN
     Indication: Toxicity to various agents
     Dosage: MIANSERYNA
     Route: 048
     Dates: start: 20200726, end: 20200726
  3. AMITRIPTYLINE [Suspect]
     Active Substance: AMITRIPTYLINE
     Indication: Toxicity to various agents
     Dosage: AMITRYPTYLINA
     Route: 048
     Dates: start: 20200726, end: 20200726
  4. HYDROXYZINE [Suspect]
     Active Substance: HYDROXYZINE HYDROCHLORIDE
     Indication: Toxicity to various agents
     Dosage: HYDROXYZYNA
     Route: 048
     Dates: start: 20200726, end: 20200726

REACTIONS (1)
  - Toxicity to various agents [Recovering/Resolving]

NARRATIVE: CASE EVENT DATE: 20200726
